FAERS Safety Report 24197602 (Version 1)
Quarter: 2024Q3

REPORT INFORMATION
  Report Type: Spontaneous
  Country: US (occurrence: US)
  Receive Date: 20240811
  Receipt Date: 20240811
  Transmission Date: 20241016
  Serious: Yes (Hospitalization)
  Sender: AMGEN
  Company Number: US-AMGEN-USASP2024157526

PATIENT
  Sex: Male

DRUGS (1)
  1. ACTIMMUNE [Suspect]
     Active Substance: INTERFERON GAMMA-1B
     Indication: Neutrophil function disorder
     Dosage: 0.5 MILLIGRAM, 3 TIMES/WK  (100 MCG/0.5) (EVERY MONDAY, WEDNESDAY, AND FRIDAY)
     Route: 058
     Dates: start: 201710

REACTIONS (1)
  - Hospitalisation [Unknown]
